FAERS Safety Report 4584513-8 (Version None)
Quarter: 2005Q1

REPORT INFORMATION
  Report Type: 
  Country: None (occurrence: None)
  Receive Date: 20050125
  Receipt Date: 20041108
  Transmission Date: 20050727
  Serious: No
  Sender: FDA-Public Use
  Company Number: USA041183329

PATIENT
  Age: 53 Year
  Sex: Female

DRUGS (7)
  1. FORTEO [Suspect]
     Dates: start: 20041022, end: 20041106
  2. FOSAMAX [Concomitant]
  3. PREDNISONE TAB [Concomitant]
  4. METHOTREXATE [Concomitant]
  5. DAYPRO [Concomitant]
  6. PRILOSEC [Concomitant]
  7. CALCIUM GLUCONATE [Concomitant]

REACTIONS (7)
  - BONE PAIN [None]
  - FACIAL PAIN [None]
  - HEADACHE [None]
  - INSOMNIA [None]
  - NAUSEA [None]
  - PAIN [None]
  - PAIN IN EXTREMITY [None]
